FAERS Safety Report 8495958-8 (Version None)
Quarter: 2012Q3

REPORT INFORMATION
  Report Type: 
  Country: None (occurrence: None)
  Receive Date: 20120709
  Receipt Date: 20120629
  Transmission Date: 20120928
  Serious: Yes (Hospitalization, Other)
  Sender: FDA-Public Use
  Company Number: BR-GLAXOSMITHKLINE-A0983556A

PATIENT
  Sex: Female
  Weight: 61 kg

DRUGS (3)
  1. FLUTICASONE PROPIONATE/SALMETEROL [Suspect]
     Indication: ASTHMA
     Dosage: 2PUFF TWICE PER DAY
     Dates: start: 20100101
  2. KETOCONAZOLE [Concomitant]
  3. FLUCONAZOLE [Concomitant]

REACTIONS (4)
  - CHOLELITHIASIS [None]
  - GALLBLADDER OPERATION [None]
  - FLATULENCE [None]
  - CANDIDIASIS [None]
